FAERS Safety Report 7720290-7 (Version None)
Quarter: 2011Q3

REPORT INFORMATION
  Report Type: 
  Country: None (occurrence: None)
  Receive Date: 20110826
  Receipt Date: 20110826
  Transmission Date: 20111222
  Serious: Yes (Other)
  Sender: FDA-Public Use
  Company Number: None

PATIENT
  Age: 57 Year
  Sex: Male
  Weight: 74.8435 kg

DRUGS (1)
  1. TINCTURE OF BENZOIN [Suspect]

REACTIONS (2)
  - DERMATITIS ALLERGIC [None]
  - BLISTER [None]
